FAERS Safety Report 23565162 (Version 4)
Quarter: 2024Q3

REPORT INFORMATION
  Report Type: Spontaneous
  Country: US (occurrence: US)
  Receive Date: 20240226
  Receipt Date: 20240918
  Transmission Date: 20241016
  Serious: Yes (Other)
  Sender: PFIZER
  Company Number: US-PFIZER INC-PV202400024587

PATIENT
  Age: 76 Year
  Sex: Female
  Weight: 63.492 kg

DRUGS (5)
  1. IBRANCE [Suspect]
     Active Substance: PALBOCICLIB
     Indication: Breast cancer metastatic
     Dosage: DAILY WITH FOOD ON DAYS 1 THROUGH 21, FOLLOWED BY A 7 DAY REST
     Route: 048
  2. IBRANCE [Suspect]
     Active Substance: PALBOCICLIB
     Indication: Small cell lung cancer
  3. VERZENIO [Suspect]
     Active Substance: ABEMACICLIB
     Indication: Breast cancer
     Dosage: UNK
  4. VERZENIO [Suspect]
     Active Substance: ABEMACICLIB
     Indication: Small cell lung cancer
  5. ALPRAZOLAM [Concomitant]
     Active Substance: ALPRAZOLAM
     Indication: Hypertension
     Dosage: 0.25, TAKE A HALF OF THAT
     Route: 048

REACTIONS (2)
  - Pharyngeal injury [Not Recovered/Not Resolved]
  - Malaise [Unknown]
